FAERS Safety Report 6247632-6 (Version None)
Quarter: 2009Q2

REPORT INFORMATION
  Report Type: 
  Country: None (occurrence: None)
  Receive Date: 20090626
  Receipt Date: 20090624
  Transmission Date: 20091009
  Serious: Yes (Other)
  Sender: FDA-Public Use
  Company Number: US-RB-005462-07

PATIENT
  Sex: Female
  Weight: 67.5 kg

DRUGS (4)
  1. SUBOXONE [Suspect]
     Route: 060
     Dates: start: 20061214, end: 20070201
  2. SUBOXONE [Suspect]
     Route: 060
     Dates: start: 20070201
  3. SUBOXONE [Suspect]
     Dosage: DOSE VARIES DAILY
     Route: 060
  4. CLONIDINE [Concomitant]
     Indication: DRUG USE FOR UNKNOWN INDICATION
     Route: 048
     Dates: start: 20060301

REACTIONS (2)
  - DRUG EXPOSURE DURING PREGNANCY [None]
  - PRE-ECLAMPSIA [None]
